FAERS Safety Report 24671145 (Version 1)
Quarter: 2024Q4

REPORT INFORMATION
  Report Type: Spontaneous
  Country: US (occurrence: US)
  Receive Date: 20241127
  Receipt Date: 20241127
  Transmission Date: 20250114
  Serious: No
  Sender: FRESENIUS KABI
  Company Number: US-FreseniusKabi-FK202417407

PATIENT
  Age: 53 Year
  Sex: Male

DRUGS (1)
  1. LACTULOSE [Suspect]
     Active Substance: LACTULOSE
     Indication: Hepatic cirrhosis
     Dosage: UNK?FORM OF ADMINSTRATION: SOLUTION?45580 G/ML
     Route: 048

REACTIONS (1)
  - Malaise [Unknown]
